FAERS Safety Report 7418929-9 (Version None)
Quarter: 2011Q2

REPORT INFORMATION
  Report Type: 
  Country: None (occurrence: None)
  Receive Date: 20110406
  Receipt Date: 20110329
  Transmission Date: 20111010
  Serious: Yes (Hospitalization, Other)
  Sender: FDA-Public Use
  Company Number: GER/UKI/11/0017855

PATIENT
  Age: 48 Year
  Sex: Male

DRUGS (4)
  1. CIPROFLOXACIN [Suspect]
     Indication: TYPHOID FEVER
     Dosage: 500 MG, 2 IN 1 DAY, ORAL
     Route: 048
  2. AZITHROMYCIN [Suspect]
     Indication: SALMONELLOSIS
     Dosage: ORAL
     Route: 048
  3. ALLOPURINOL [Concomitant]
  4. SIMVASTATIN [Concomitant]

REACTIONS (7)
  - PYREXIA [None]
  - DRUG RESISTANCE [None]
  - DRUG INEFFECTIVE [None]
  - SPLEEN PALPABLE [None]
  - ALANINE AMINOTRANSFERASE INCREASED [None]
  - CHILLS [None]
  - BLOOD ALKALINE PHOSPHATASE INCREASED [None]
